FAERS Safety Report 16318735 (Version 1)
Quarter: 2019Q2

REPORT INFORMATION
  Report Type: Spontaneous
  Country: US (occurrence: US)
  Receive Date: 20190516
  Receipt Date: 20190516
  Transmission Date: 20190711
  Serious: No
  Sender: FDA-Public Use
  Company Number: US-SUNOVION-2019SUN001863

PATIENT
  Age: 14 Year
  Sex: Male

DRUGS (1)
  1. LATUDA [Suspect]
     Active Substance: LURASIDONE HYDROCHLORIDE
     Dosage: 20 MG, QD
     Route: 048

REACTIONS (4)
  - Flushing [Recovered/Resolved]
  - Feeling hot [Recovered/Resolved]
  - Paraesthesia oral [Recovered/Resolved]
  - Erythema [Recovered/Resolved]
